FAERS Safety Report 7679752-3 (Version None)
Quarter: 2011Q3

REPORT INFORMATION
  Report Type: 
  Country: None (occurrence: None)
  Receive Date: 20110812
  Receipt Date: 20101109
  Transmission Date: 20111222
  Serious: Yes (Hospitalization)
  Sender: FDA-Public Use
  Company Number: US-BAYER-201020680NA

PATIENT
  Age: 31 Year
  Sex: Female
  Weight: 77.273 kg

DRUGS (12)
  1. ACYCLOVIR [Concomitant]
     Indication: ORAL HERPES
  2. VALACYCLOVIR HYDROCHLORIDE [Concomitant]
     Dosage: 200 MG, UNK
  3. YASMIN [Suspect]
     Indication: PREMENSTRUAL SYNDROME
  4. ASCORBIC ACID [Concomitant]
  5. YASMIN [Suspect]
     Indication: CONTRACEPTION
     Route: 048
     Dates: start: 20050301, end: 20080601
  6. DROSPIRENONE AND ETHINYL ESTRADIOL [Suspect]
     Indication: CONTRACEPTION
     Dosage: UNK
     Route: 048
     Dates: start: 20080601, end: 20091101
  7. ACYCLOVIR [Concomitant]
     Dosage: 5 TIMES DAILY
  8. SULFAMETHOXAZOLE AND TRIMETHOPRIM [Concomitant]
     Dosage: UNK MG, UNK
  9. DROSPIRENONE AND ETHINYL ESTRADIOL [Suspect]
     Indication: PREMENSTRUAL SYNDROME
  10. AVIANE-28 [Concomitant]
  11. VICODIN [Concomitant]
     Dosage: 5-500MG
  12. ACETAMINOPHEN [Concomitant]

REACTIONS (7)
  - OCULAR ICTERUS [None]
  - CHOLELITHIASIS [None]
  - FAECES PALE [None]
  - CHOLECYSTITIS CHRONIC [None]
  - CHROMATURIA [None]
  - BILE DUCT STONE [None]
  - ABDOMINAL PAIN [None]
